FAERS Safety Report 14918116 (Version 3)
Quarter: 2019Q2

REPORT INFORMATION
  Report Type: Spontaneous
  Country: FR (occurrence: FR)
  Receive Date: 20180521
  Receipt Date: 20190402
  Transmission Date: 20190711
  Serious: Yes (Other)
  Sender: FDA-Public Use
  Company Number: FR-MERCK KGAA-2048122

PATIENT
  Age: 42 Year
  Sex: Female
  Weight: 67 kg

DRUGS (4)
  1. EUTHYROX [Suspect]
     Active Substance: LEVOTHYROXINE SODIUM
     Route: 048
  2. EUTHYROX [Suspect]
     Active Substance: LEVOTHYROXINE SODIUM
     Indication: THYROIDECTOMY
     Route: 048
     Dates: start: 2017, end: 201710
  3. EUTHYROX [Suspect]
     Active Substance: LEVOTHYROXINE SODIUM
     Route: 048
  4. EUTHYROX [Suspect]
     Active Substance: LEVOTHYROXINE SODIUM
     Route: 048
     Dates: start: 2017, end: 201710

REACTIONS (45)
  - Weight increased [Not Recovered/Not Resolved]
  - Musculoskeletal pain [Recovering/Resolving]
  - Back pain [Recovering/Resolving]
  - Pain in extremity [Recovering/Resolving]
  - Loss of libido [Recovering/Resolving]
  - Chest pain [Recovering/Resolving]
  - Visceral congestion [Recovering/Resolving]
  - Impaired work ability [Not Recovered/Not Resolved]
  - Nocturia [Recovering/Resolving]
  - Blood thyroid stimulating hormone increased [Recovering/Resolving]
  - Mood altered [Recovering/Resolving]
  - Anxiety [Not Recovered/Not Resolved]
  - Amnesia [Not Recovered/Not Resolved]
  - Depression [Not Recovered/Not Resolved]
  - Neck pain [Recovering/Resolving]
  - Microalbuminuria [Recovering/Resolving]
  - Mood swings [Recovering/Resolving]
  - Affect lability [Recovering/Resolving]
  - Upper-airway cough syndrome [Recovering/Resolving]
  - Menstruation irregular [Recovering/Resolving]
  - Hot flush [Recovering/Resolving]
  - Headache [Recovering/Resolving]
  - Personal relationship issue [Recovering/Resolving]
  - Personality change [Recovering/Resolving]
  - Feeling of despair [Recovering/Resolving]
  - Hypokinesia [Recovering/Resolving]
  - Spinal pain [None]
  - Poor quality sleep [Not Recovered/Not Resolved]
  - Blood glucose abnormal [Not Recovered/Not Resolved]
  - Constipation [Not Recovered/Not Resolved]
  - Asthenia [Not Recovered/Not Resolved]
  - Pollakiuria [Recovering/Resolving]
  - Weight decreased [Recovering/Resolving]
  - Fatigue [Not Recovered/Not Resolved]
  - Pain [Not Recovered/Not Resolved]
  - Dry mouth [Not Recovered/Not Resolved]
  - Irritability [Recovering/Resolving]
  - Vision blurred [Recovering/Resolving]
  - Myalgia [Recovering/Resolving]
  - Abdominal distension [Recovering/Resolving]
  - Cough [Recovering/Resolving]
  - Pyrexia [Recovering/Resolving]
  - Arrested labour [Not Recovered/Not Resolved]
  - Ear pain [Recovering/Resolving]
  - Product availability issue [None]

NARRATIVE: CASE EVENT DATE: 2017
